FAERS Safety Report 10214847 (Version 3)
Quarter: 2014Q2

REPORT INFORMATION
  Report Type: Spontaneous
  Country: US (occurrence: US)
  Receive Date: 20140603
  Receipt Date: 20140630
  Transmission Date: 20141212
  Serious: Yes (Hospitalization)
  Sender: FDA-Public Use
  Company Number: US-JNJFOC-20140600502

PATIENT
  Age: 66 Year
  Sex: Male
  Weight: 76.66 kg

DRUGS (14)
  1. OLYSIO [Suspect]
     Indication: HEPATITIS C
     Dosage: DC^D END OF APR.
     Route: 048
     Dates: start: 20140408, end: 201404
  2. SOVALDI [Suspect]
     Indication: HEPATITIS C
     Dosage: DC^D END OF APR.
     Route: 048
     Dates: start: 20140408, end: 201404
  3. XANAX [Concomitant]
     Route: 048
  4. PROMACTA [Concomitant]
     Route: 048
  5. FOLIC ACID [Concomitant]
     Route: 048
  6. LASIX [Concomitant]
     Dosage: ONCE DAILY AS NEEDED
     Route: 048
  7. LACTULOSE [Concomitant]
     Route: 048
  8. NADOLOL [Concomitant]
     Dosage: COMBO ROUTE
  9. OMEPRAZOLE [Concomitant]
     Route: 048
  10. PAXIL [Concomitant]
     Route: 048
  11. XIFAXAN [Concomitant]
     Route: 048
  12. ALDACTONE [Concomitant]
     Route: 048
  13. VITAMIN B COMPLEX [Concomitant]
     Route: 048
  14. AMBIEN [Concomitant]
     Dosage: TBMP
     Route: 048

REACTIONS (2)
  - Convulsion [Recovered/Resolved]
  - Off label use [Recovered/Resolved]
